FAERS Safety Report 4691086-8 (Version None)
Quarter: 2005Q2

REPORT INFORMATION
  Report Type: 
  Country: None (occurrence: None)
  Receive Date: 20050610
  Receipt Date: 20050606
  Transmission Date: 20051028
  Serious: Yes (Other)
  Sender: FDA-Public Use
  Company Number: CAP05000206

PATIENT
  Age: 84 Year
  Sex: Female

DRUGS (12)
  1. ACTONEL [Suspect]
     Indication: OSTEOPOROSIS POSTMENOPAUSAL
     Dosage: 5 MG DAILY, ORAL
     Route: 048
  2. HYDROCHLOROTHIAZIDE [Suspect]
     Indication: HYPERTENSION
     Dosage: 25 MG DAILY
  3. PREDNISONE (PREDNISONE) [Concomitant]
  4. RABEPRAZOLE SODIUM [Concomitant]
  5. BISOPROLOL (BISOPROLOL) [Concomitant]
  6. ACETYLSALICYLIC ACID SRT [Concomitant]
  7. CALCIUM WITH VITAMIN D (ERGOCALCIFEROL, CALCIUM SODIUM LACTATE, CALCIU [Concomitant]
  8. AMLODIPINE [Concomitant]
  9. RAMIPRIL [Concomitant]
  10. DIGOXIN [Concomitant]
  11. LEVOTHYROXINE SODIUM [Concomitant]
  12. WARFARIN SODIUM [Concomitant]

REACTIONS (1)
  - RENAL FAILURE [None]
